FAERS Safety Report 7047936-3 (Version None)
Quarter: 2010Q4

REPORT INFORMATION
  Report Type: 
  Country: None (occurrence: None)
  Receive Date: 20101015
  Receipt Date: 20101015
  Transmission Date: 20110411
  Serious: Yes (Death)
  Sender: FDA-Public Use
  Company Number: JP-EISAI INC.-E2020-07717-SPO-JP

PATIENT
  Sex: Female
  Weight: 38 kg

DRUGS (3)
  1. ARICEPT [Suspect]
     Indication: DEMENTIA ALZHEIMER'S TYPE
     Route: 048
     Dates: start: 20100910, end: 20100916
  2. ARICEPT [Suspect]
     Route: 048
     Dates: start: 20100917, end: 20100920
  3. AROFUTO [Concomitant]
     Route: 048
     Dates: start: 20100909, end: 20100921

REACTIONS (1)
  - COMPLETED SUICIDE [None]
